FAERS Safety Report 7236738-0 (Version None)
Quarter: 2011Q1

REPORT INFORMATION
  Report Type: 
  Country: None (occurrence: None)
  Receive Date: 20110120
  Receipt Date: 20110111
  Transmission Date: 20110831
  Serious: No
  Sender: FDA-Public Use
  Company Number: US-B.I. PHARMACEUTICALS,INC./RIDGEFIELD-2011-BP-01119BP

PATIENT
  Age: 74 Year
  Sex: Female

DRUGS (8)
  1. TENORMIN [Concomitant]
     Indication: HYPERTENSION
  2. MULTI-VITAMIN [Concomitant]
     Indication: PROPHYLAXIS
  3. HYDROCHLOROTHIAZIDE [Concomitant]
     Indication: HYPERTENSION
  4. PRADAXA [Suspect]
     Indication: ATRIAL FIBRILLATION
     Dosage: 300 MG
     Route: 048
     Dates: start: 20101201
  5. GARLIC [Concomitant]
     Indication: PROPHYLAXIS
  6. FISH OIL [Concomitant]
     Indication: PROPHYLAXIS
  7. FLAX SEED [Concomitant]
     Indication: PROPHYLAXIS
  8. PREMERE OCULAR NUTRITION [Concomitant]
     Indication: MACULAR DEGENERATION

REACTIONS (4)
  - HEADACHE [None]
  - DYSPEPSIA [None]
  - DIZZINESS [None]
  - FAECAL VOLUME INCREASED [None]
